FAERS Safety Report 5175272-9 (Version None)
Quarter: 2006Q4

REPORT INFORMATION
  Report Type: 
  Country: None (occurrence: None)
  Receive Date: 20061211
  Receipt Date: 20061211
  Transmission Date: 20070319
  Serious: Yes (Other)
  Sender: FDA-Public Use
  Company Number: None

PATIENT
  Age: 69 Year
  Sex: Female

DRUGS (4)
  1. BONIVA [Suspect]
     Indication: OSTEOPOROSIS
     Dosage: 1 TABLET MONTHLY
     Dates: start: 20061001, end: 20061101
  2. LOTREL [Concomitant]
  3. TOPROL-XL [Concomitant]
  4. ENABLEX [Concomitant]

REACTIONS (2)
  - HEADACHE [None]
  - MIGRAINE [None]
